FAERS Safety Report 17841911 (Version 1)
Quarter: 2020Q2

REPORT INFORMATION
  Report Type: Spontaneous
  Country: US (occurrence: US)
  Receive Date: 20200529
  Receipt Date: 20200529
  Transmission Date: 20200714
  Serious: No
  Sender: FDA-Public Use
  Company Number: US-BAUSCH-BL-2020-015491

PATIENT
  Age: 34 Year
  Sex: Female
  Weight: 49.94 kg

DRUGS (4)
  1. WELLBUTRIN XL [Suspect]
     Active Substance: BUPROPION HYDROCHLORIDE
     Route: 048
     Dates: start: 20200525, end: 20200525
  2. WELLBUTRIN XL [Suspect]
     Active Substance: BUPROPION HYDROCHLORIDE
     Indication: PRODUCT USED FOR UNKNOWN INDICATION
     Route: 048
  3. WELLBUTRIN XL [Suspect]
     Active Substance: BUPROPION HYDROCHLORIDE
     Dosage: RESTARTED AFTER BEING OFF AFTER EXTENDED PERIOD, 300 MG PLUS 150 MG TABLET
     Route: 048
     Dates: start: 202005, end: 20200524
  4. WELLBUTRIN XL [Suspect]
     Active Substance: BUPROPION HYDROCHLORIDE
     Route: 048
     Dates: start: 20200526

REACTIONS (6)
  - Accidental overdose [Unknown]
  - Feeling abnormal [Unknown]
  - Therapy interrupted [Unknown]
  - Vision blurred [Unknown]
  - Speech disorder [Unknown]
  - Abnormal behaviour [Unknown]

NARRATIVE: CASE EVENT DATE: 202005
